FAERS Safety Report 14585450 (Version 2)
Quarter: 2018Q2

REPORT INFORMATION
  Report Type: Report from Study
  Country: US (occurrence: US)
  Receive Date: 20180301
  Receipt Date: 20180413
  Transmission Date: 20180711
  Serious: Yes (Death, Other)
  Sender: FDA-Public Use
  Company Number: US-009507513-1802USA013248

PATIENT
  Sex: Male

DRUGS (4)
  1. KEYTRUDA [Suspect]
     Active Substance: PEMBROLIZUMAB
     Indication: PANCREATIC CARCINOMA
     Dosage: EVERY 3 WEEKS, FIRST 2 DOSES
     Route: 042
     Dates: start: 201801
  2. CREON [Concomitant]
     Active Substance: PANCRELIPASE AMYLASE\PANCRELIPASE LIPASE\PANCRELIPASE PROTEASE
     Dosage: UNK
  3. KEYTRUDA [Suspect]
     Active Substance: PEMBROLIZUMAB
     Dosage: EVERY 3 WEEKS
     Route: 042
     Dates: start: 20180221, end: 20180222
  4. PEPSIN [Concomitant]
     Active Substance: PEPSIN
     Dosage: UNK

REACTIONS (5)
  - Gastrooesophageal reflux disease [Unknown]
  - Intra-abdominal fluid collection [Unknown]
  - Death [Fatal]
  - Product use in unapproved indication [Unknown]
  - Pancreatic disorder [Unknown]

NARRATIVE: CASE EVENT DATE: 2018
